FAERS Safety Report 10047544 (Version 1)
Quarter: 2014Q1

REPORT INFORMATION
  Report Type: Spontaneous
  Country: US (occurrence: US)
  Receive Date: 20140331
  Receipt Date: 20140331
  Transmission Date: 20141002
  Serious: Yes (Other)
  Sender: FDA-Public Use
  Company Number: US-JNJFOC-20140314358

PATIENT
  Sex: Male

DRUGS (1)
  1. INVEGA SUSTENNA [Suspect]
     Indication: SCHIZOPHRENIA
     Dosage: MONTHLY
     Route: 030
     Dates: start: 2009, end: 201403

REACTIONS (5)
  - Eye pain [Not Recovered/Not Resolved]
  - Visual impairment [Not Recovered/Not Resolved]
  - Judgement impaired [Not Recovered/Not Resolved]
  - Breast enlargement [Not Recovered/Not Resolved]
  - Drug dose omission [Unknown]
